FAERS Safety Report 18705238 (Version 1)
Quarter: 2021Q1

REPORT INFORMATION
  Report Type: Spontaneous
  Country: US (occurrence: US)
  Receive Date: 20210105
  Receipt Date: 20210105
  Transmission Date: 20210419
  Serious: No
  Sender: FDA-Public Use
  Company Number: None

PATIENT
  Age: 38 Year
  Sex: Female

DRUGS (3)
  1. BUPRENORPHINE ?NALOXONE 8?2MG [Suspect]
     Active Substance: BUPRENORPHINE\NALOXONE
     Indication: DRUG DEPENDENCE
  2. BUPRENORPHINE ?NALOXONE 8?2MG [Suspect]
     Active Substance: BUPRENORPHINE\NALOXONE
     Indication: DRUG DEPENDENCE
     Dosage: ?          OTHER DOSE:8/2MG;?
     Route: 060
     Dates: start: 20200826
  3. BUPRENORPHINE ?NALOXONE 8?2MG [Suspect]
     Active Substance: BUPRENORPHINE\NALOXONE
     Indication: POISONING
     Dosage: ?          OTHER DOSE:8/2MG;?
     Route: 060
     Dates: start: 20200826

REACTIONS (2)
  - Drug withdrawal syndrome [None]
  - Malaise [None]
